FAERS Safety Report 5472487-7 (Version None)
Quarter: 2007Q4

REPORT INFORMATION
  Report Type: 
  Country: None (occurrence: None)
  Receive Date: 20071001
  Receipt Date: 20070926
  Transmission Date: 20080405
  Serious: Yes (Hospitalization)
  Sender: FDA-Public Use
  Company Number: DEWYE210523AUG07

PATIENT
  Sex: Female
  Weight: 53 kg

DRUGS (7)
  1. TREVILOR [Suspect]
     Dosage: UNKNOWN
     Route: 048
     Dates: start: 20070822, end: 20070822
  2. CETIRIZINE HCL [Suspect]
     Dosage: 5 TABLETS
     Route: 048
     Dates: start: 20070822, end: 20070822
  3. ALCOHOL [Suspect]
     Dosage: UNKNOWN
     Route: 048
     Dates: start: 20070822, end: 20070822
  4. DICLOFENAC [Suspect]
     Dosage: UNKNOWN
     Route: 048
     Dates: start: 20070822, end: 20070822
  5. PARACETAMOL [Suspect]
     Dosage: 20 TABLETS (OVERDOSE AMOUNT 10000 MG)
     Route: 048
     Dates: start: 20070822, end: 20070822
  6. ASPIRIN [Suspect]
     Dosage: 1 TABLET
     Route: 048
     Dates: start: 20070822, end: 20070822
  7. DIAZEPAM [Suspect]
     Dosage: 25 ML
     Route: 048
     Dates: start: 20070822, end: 20070822

REACTIONS (2)
  - INTENTIONAL OVERDOSE [None]
  - SOMNOLENCE [None]
